FAERS Safety Report 10521456 (Version 2)
Quarter: 2014Q4

REPORT INFORMATION
  Report Type: Spontaneous
  Country: TR (occurrence: TR)
  Receive Date: 20141016
  Receipt Date: 20141022
  Transmission Date: 20150528
  Serious: Yes (Other)
  Sender: FDA-Public Use
  Company Number: TR-RANBAXY-2014RR-86389

PATIENT
  Age: 42 Month
  Sex: Male

DRUGS (2)
  1. CETIRIZINE [Suspect]
     Active Substance: CETIRIZINE HYDROCHLORIDE
     Indication: HELMINTHIC INFECTION
     Dosage: 1 DF, SINGLE
     Route: 065
  2. ALBENDAZOLE [Suspect]
     Active Substance: ALBENDAZOLE
     Indication: HELMINTHIC INFECTION
     Dosage: 1 DF, SINGLE
     Route: 065

REACTIONS (1)
  - Dystonia [Recovered/Resolved]
